FAERS Safety Report 21037785 (Version 6)
Quarter: 2022Q4

REPORT INFORMATION
  Report Type: Spontaneous
  Country: US (occurrence: US)
  Receive Date: 20220704
  Receipt Date: 20221111
  Transmission Date: 20230113
  Serious: Yes (Other)
  Sender: FDA-Public Use
  Company Number: US-BoehringerIngelheim-2022-BI-179668

PATIENT
  Age: 77 Year
  Sex: Female

DRUGS (2)
  1. GILOTRIF [Suspect]
     Active Substance: AFATINIB
     Indication: Lung neoplasm malignant
     Route: 048
     Dates: start: 202204
  2. GILOTRIF [Suspect]
     Active Substance: AFATINIB
     Indication: Metastases to central nervous system
     Route: 048
     Dates: start: 202206

REACTIONS (21)
  - Suicidal ideation [Unknown]
  - Diarrhoea [Unknown]
  - Eye pain [Unknown]
  - Eye disorder [Unknown]
  - Epistaxis [Unknown]
  - Oral pain [Unknown]
  - Hypophagia [Unknown]
  - Alopecia [Unknown]
  - Urinary incontinence [Unknown]
  - Dysuria [Unknown]
  - Nail bed inflammation [Not Recovered/Not Resolved]
  - Diarrhoea [Not Recovered/Not Resolved]
  - Blood glucose decreased [Recovered/Resolved]
  - Urinary tract infection [Not Recovered/Not Resolved]
  - Ocular discomfort [Unknown]
  - Dry skin [Unknown]
  - Hair growth abnormal [Unknown]
  - Rhinorrhoea [Not Recovered/Not Resolved]
  - Skin discolouration [Unknown]
  - Pruritus [Unknown]
  - Pain in extremity [Unknown]

NARRATIVE: CASE EVENT DATE: 20220101
